FAERS Safety Report 9061521 (Version 1)
Quarter: 2013Q1

REPORT INFORMATION
  Report Type: Spontaneous
  Country: US (occurrence: None)
  Receive Date: 20130208
  Receipt Date: 20130208
  Transmission Date: 20140127
  Serious: Yes (Hospitalization)
  Sender: FDA-Public Use
  Company Number: None

PATIENT
  Age: 84 Year
  Sex: Male
  Weight: 108 kg

DRUGS (17)
  1. WARFARIN [Suspect]
     Indication: ATRIAL FIBRILLATION
     Dosage: 2.5 MG 6X/WK  ALT W/ 5MG 1X/WK  AS DIRECTED PO?PRIOR TO ADMISSION
  2. ACETAMINOPHEN [Concomitant]
  3. ALBUTEROL/IPRATROPIUM NEBULIZERS [Concomitant]
  4. ALPRAZOLAM [Concomitant]
  5. AZELASTINE [Concomitant]
  6. DUTASTERIDE [Concomitant]
  7. FLUTICASONE/SALMETEROL [Concomitant]
  8. FUROSEMIDE [Concomitant]
  9. HYDROCORTISONE [Concomitant]
  10. IRON POLYSACCHARIDE [Concomitant]
  11. LEVOTHYROXINE [Concomitant]
  12. LOVASTATIN [Concomitant]
  13. METOLAZONE [Concomitant]
  14. METOPROLOL XL [Concomitant]
  15. OMEPRAZOLE [Concomitant]
  16. KCL [Concomitant]
  17. ROPINIROLE [Concomitant]

REACTIONS (2)
  - Pneumonia [None]
  - Haemoptysis [None]
